FAERS Safety Report 20761296 (Version 1)
Quarter: 2022Q2

REPORT INFORMATION
  Report Type: Spontaneous
  Country: CN (occurrence: None)
  Receive Date: 20220428
  Receipt Date: 20220428
  Transmission Date: 20220721
  Serious: Yes (Other)
  Sender: FDA-Public Use
  Company Number: CN-ROCHE-3077687

PATIENT
  Age: 67 Year

DRUGS (2)
  1. GAZYVA [Suspect]
     Active Substance: OBINUTUZUMAB
     Indication: Chronic lymphocytic leukaemia
     Dosage: 25MG/H
     Route: 042
     Dates: start: 20220413, end: 20220413
  2. GAZYVA [Suspect]
     Active Substance: OBINUTUZUMAB
     Dosage: 25MG/H
     Route: 042
     Dates: start: 20220414, end: 20220414

REACTIONS (3)
  - Tumour lysis syndrome [Recovering/Resolving]
  - Transaminases increased [Recovering/Resolving]
  - Acute hepatic failure [Recovering/Resolving]

NARRATIVE: CASE EVENT DATE: 20220414
